FAERS Safety Report 9767504 (Version 1)
Quarter: 2013Q4

REPORT INFORMATION
  Report Type: Spontaneous
  Country: US (occurrence: None)
  Receive Date: 20131213
  Receipt Date: 20131213
  Transmission Date: 20140711
  Serious: Yes (Other)
  Sender: FDA-Public Use
  Company Number: 2013SA026291

PATIENT
  Sex: Female

DRUGS (1)
  1. CAPZASIN HP [Suspect]
     Indication: PRODUCT USED FOR UNKNOWN INDICATION
     Route: 061

REACTIONS (7)
  - Insomnia [None]
  - Rash vesicular [None]
  - Application site pain [None]
  - Burning sensation [None]
  - Paraesthesia [None]
  - Application site rash [None]
  - Chemical injury [None]
